FAERS Safety Report 4970597-1 (Version None)
Quarter: 2006Q2

REPORT INFORMATION
  Report Type: 
  Country: None (occurrence: None)
  Receive Date: 20060412
  Receipt Date: 20060313
  Transmission Date: 20061013
  Serious: Yes (Death, Hospitalization)
  Sender: FDA-Public Use
  Company Number: US-MERCK-0603USA02238

PATIENT
  Age: 54 Year
  Sex: Male
  Weight: 123 kg

DRUGS (6)
  1. VIOXX [Suspect]
     Indication: MONARTHRITIS
     Route: 048
     Dates: start: 19990601, end: 20040304
  2. COUMADIN [Concomitant]
     Route: 065
  3. FLOMAX (MORNIFLUMATE) [Concomitant]
     Route: 065
  4. LIPITOR [Concomitant]
     Route: 065
  5. LISINOPRIL [Concomitant]
     Route: 065
  6. NORVASC [Concomitant]
     Route: 065

REACTIONS (6)
  - ABDOMINAL PAIN [None]
  - ARTERIOSCLEROSIS CORONARY ARTERY [None]
  - CARDIOMEGALY [None]
  - HYPERTENSIVE HEART DISEASE [None]
  - NEPHROSCLEROSIS [None]
  - VENTRICULAR HYPERTROPHY [None]
